FAERS Safety Report 5398795-6 (Version None)
Quarter: 2007Q3

REPORT INFORMATION
  Report Type: 
  Country: None (occurrence: None)
  Receive Date: 20070725
  Receipt Date: 20070725
  Transmission Date: 20080115
  Serious: Yes (Hospitalization, Other)
  Sender: FDA-Public Use
  Company Number: None

PATIENT
  Sex: Female
  Weight: 45.3597 kg

DRUGS (5)
  1. SEROQUEL [Suspect]
     Indication: ANXIETY
     Dosage: 50 MG DAILY ORALLY (25 MG, INCREASED TO 50MG)
     Route: 048
  2. SEROQUEL [Suspect]
     Indication: DISORIENTATION
     Dosage: 50 MG DAILY ORALLY (25 MG, INCREASED TO 50MG)
     Route: 048
  3. ARICEPT [Suspect]
     Indication: DEMENTIA
     Dosage: DAILY ORALLY
     Route: 048
  4. SYNTHROID [Concomitant]
  5. DIGOXIN [Concomitant]

REACTIONS (3)
  - BLOOD PRESSURE INCREASED [None]
  - CONFUSIONAL STATE [None]
  - UNRESPONSIVE TO STIMULI [None]
